FAERS Safety Report 7705042-6 (Version None)
Quarter: 2011Q3

REPORT INFORMATION
  Report Type: 
  Country: None (occurrence: None)
  Receive Date: 20110823
  Receipt Date: 20110815
  Transmission Date: 20111222
  Serious: Yes (Hospitalization)
  Sender: FDA-Public Use
  Company Number: JP-B.I. PHARMACEUTICALS,INC./RIDGEFIELD-2011-BP-20057NB

PATIENT
  Sex: Male

DRUGS (5)
  1. OLMESARTAN MEDOXOMIL [Concomitant]
     Indication: HYPERTENSION
     Route: 048
  2. AMARYL [Concomitant]
     Indication: DIABETES MELLITUS
     Route: 048
  3. PRADAXA [Suspect]
     Indication: ATRIAL FIBRILLATION
     Dosage: 220 MG
     Route: 048
     Dates: start: 20110506, end: 20110813
  4. DIGOXIN [Concomitant]
     Indication: CARDIAC FAILURE
     Route: 048
  5. CALBLOCK [Concomitant]
     Indication: HYPERTENSION
     Route: 048

REACTIONS (2)
  - ANAEMIA [None]
  - VISION BLURRED [None]
